FAERS Safety Report 16339151 (Version 2)
Quarter: 2019Q2

REPORT INFORMATION
  Report Type: Spontaneous
  Country: DK (occurrence: DK)
  Receive Date: 20190521
  Receipt Date: 20190531
  Transmission Date: 20190711
  Serious: Yes (Hospitalization, Other)
  Sender: FDA-Public Use
  Company Number: DK-PFIZER INC-2019214789

PATIENT
  Age: 26 Year
  Sex: Male
  Weight: 109 kg

DRUGS (1)
  1. ZESSLY [Suspect]
     Active Substance: INFLIXIMAB
     Indication: CROHN^S DISEASE
     Dosage: 545 MG, UNK
     Route: 042
     Dates: start: 20190424, end: 20190424

REACTIONS (6)
  - Cough [Recovered/Resolved]
  - Vomiting [Recovered/Resolved]
  - Erythema [Recovered/Resolved]
  - Anaphylactic reaction [Recovered/Resolved]
  - Malaise [Recovered/Resolved]
  - Nausea [Recovered/Resolved]

NARRATIVE: CASE EVENT DATE: 20190424
